FAERS Safety Report 9015378 (Version 1)
Quarter: 2013Q1

REPORT INFORMATION
  Report Type: Spontaneous
  Country: US (occurrence: None)
  Receive Date: 20130103
  Receipt Date: 20130103
  Transmission Date: 20140127
  Serious: Yes (Hospitalization)
  Sender: FDA-Public Use
  Company Number: 12AE015

PATIENT
  Age: 24 Month
  Sex: Male

DRUGS (1)
  1. WALGREENS IBUPROFEN TABLETS [Suspect]
     Dosage: SUCKED ON 2 TABLETS
     Dates: start: 20121101

REACTIONS (2)
  - Accidental exposure to product by child [None]
  - Failure of child resistant mechanism for pharmaceutical product [None]
